FAERS Safety Report 6805822-5 (Version None)
Quarter: 2010Q2

REPORT INFORMATION
  Report Type: 
  Country: None (occurrence: None)
  Receive Date: 20100629
  Receipt Date: 20090430
  Transmission Date: 20101027
  Serious: No
  Sender: FDA-Public Use
  Company Number: US-PFIZER INC-2003016229

PATIENT
  Sex: Male
  Weight: 106.6 kg

DRUGS (16)
  1. VIAGRA [Suspect]
     Indication: ERECTILE DYSFUNCTION
     Dosage: PRN
     Route: 048
     Dates: start: 19980101
  2. PROPAFENONE HCL [Concomitant]
     Route: 048
  3. DIAZEPAM [Concomitant]
     Route: 048
  4. DILTIAZEM HCL [Concomitant]
     Route: 048
  5. FUROSEMIDE [Concomitant]
     Route: 048
  6. POTASSIUM [Concomitant]
     Route: 048
  7. GUAIFENESIN [Concomitant]
     Route: 048
  8. RANITIDINE [Concomitant]
     Route: 048
  9. SIMVASTATIN [Concomitant]
     Route: 048
  10. TOCOPHEROL CONCENTRATE CAP [Concomitant]
     Route: 048
  11. ASCORBIC ACID [Concomitant]
     Route: 048
  12. ACETAMINOPHEN [Concomitant]
     Route: 048
  13. ACETYLSALICYLIC ACID [Concomitant]
     Route: 048
  14. PSYLLIUM [Concomitant]
     Route: 048
  15. IPRATROPIUM BROMIDE [Concomitant]
     Route: 055
  16. PIRBUTEROL ACETATE [Concomitant]
     Route: 055

REACTIONS (4)
  - DYSPNOEA [None]
  - EJACULATION FAILURE [None]
  - ERECTILE DYSFUNCTION [None]
  - SPONTANEOUS PENILE ERECTION [None]
